FAERS Safety Report 4337863-4 (Version None)
Quarter: 2004Q2

REPORT INFORMATION
  Report Type: 
  Country: None (occurrence: None)
  Receive Date: 20040408
  Receipt Date: 20040324
  Transmission Date: 20050107
  Serious: Yes (Hospitalization)
  Sender: FDA-Public Use
  Company Number: DSA_23697_2003

PATIENT
  Age: 51 Year
  Sex: Male
  Weight: 82 kg

DRUGS (4)
  1. TEVETEN [Suspect]
     Indication: HYPERTENSION
     Dosage: 400 MG Q DAY PO
     Route: 048
     Dates: start: 19991213, end: 20000228
  2. TEVETEN [Suspect]
     Indication: HYPERTENSION
     Dosage: 300 MG Q DAY PO
     Route: 048
     Dates: start: 20000228, end: 20000302
  3. TEVETEN [Suspect]
     Indication: HYPERTENSION
     Dosage: 200 MG Q DAY PO
     Route: 048
     Dates: start: 20000302
  4. DELIX [Concomitant]

REACTIONS (3)
  - CHEST WALL PAIN [None]
  - FALL [None]
  - ORTHOSTATIC HYPOTENSION [None]
